FAERS Safety Report 25803878 (Version 1)
Quarter: 2025Q3

REPORT INFORMATION
  Report Type: Spontaneous
  Country: US (occurrence: US)
  Receive Date: 20250915
  Receipt Date: 20250915
  Transmission Date: 20251020
  Serious: Yes (Other)
  Sender: PFIZER
  Company Number: US-PFIZER INC-202500170012

PATIENT
  Age: 47 Year
  Sex: Female

DRUGS (3)
  1. TUKYSA [Suspect]
     Active Substance: TUCATINIB
     Indication: Breast cancer
     Dosage: 300 MG, 2X/DAY
     Route: 048
  2. TUKYSA [Suspect]
     Active Substance: TUCATINIB
     Indication: Invasive ductal breast carcinoma
     Dosage: 150 MG, 2X/DAY
     Dates: start: 20250910
  3. MEDROL [Concomitant]
     Active Substance: METHYLPREDNISOLONE

REACTIONS (5)
  - Breast cancer metastatic [Unknown]
  - Malignant neoplasm progression [Unknown]
  - Metastases to lung [Unknown]
  - Off label use [Unknown]
  - Off label use [Unknown]

NARRATIVE: CASE EVENT DATE: 20250910
